FAERS Safety Report 8450948-6 (Version None)
Quarter: 2012Q2

REPORT INFORMATION
  Report Type: 
  Country: None (occurrence: None)
  Receive Date: 20120615
  Receipt Date: 20120615
  Transmission Date: 20120825
  Serious: No
  Sender: FDA-Public Use
  Company Number: None

PATIENT
  Age: 34 Year
  Sex: 0
  Weight: 51.8 kg

DRUGS (4)
  1. ALPRAZOLAM [Concomitant]
  2. TEGRETOL [Suspect]
     Indication: BIPOLAR DISORDER
     Dosage: 50 MG QAM AND 100 MG QPM  TWICE DAILY PO
     Route: 048
  3. DARUNAVIR ETHANOLATE [Suspect]
     Indication: HIV INFECTION
     Dosage: 800 MG ONCE DAILY PO FEW MONTHS BEFORE + AFTER 2012
  4. TRAZODONE HCL [Concomitant]

REACTIONS (1)
  - DERMATITIS ALLERGIC [None]
